FAERS Safety Report 14645158 (Version 1)
Quarter: 2018Q1

REPORT INFORMATION
  Report Type: Spontaneous
  Country: DE (occurrence: DE)
  Receive Date: 20180315
  Receipt Date: 20180315
  Transmission Date: 20180509
  Serious: Yes (Congenital Anomaly, Other)
  Sender: FDA-Public Use
  Company Number: DE-ASTRAZENECA-2018SE30484

PATIENT
  Age: 1 Day
  Sex: Male
  Weight: 3.1 kg

DRUGS (4)
  1. PRESINOL [Concomitant]
     Active Substance: METHYLDOPA
     Indication: GESTATIONAL HYPERTENSION
     Dosage: 2000 [MG/D ]/ VARYING DOSAGES ACCORDING TO BLOOD PRESSURE, DOSAGE INCREASE FROM 125 TO 2000 MG/D
     Route: 064
  2. QUETIAPINE. [Suspect]
     Active Substance: QUETIAPINE
     Indication: BIPOLAR DISORDER
     Dosage: 600 [MG/D ]
     Route: 064
     Dates: start: 20161205, end: 20170822
  3. CITALOPRAM [Suspect]
     Active Substance: CITALOPRAM HYDROBROMIDE
     Indication: BIPOLAR DISORDER
     Route: 064
     Dates: start: 20161205, end: 20170822
  4. L-THYROXIN [Concomitant]
     Active Substance: LEVOTHYROXINE SODIUM
     Indication: HYPOTHYROIDISM
     Dosage: 150 [???G/D (BIS 125, IM WECHSEL) ]/ 150???G TWICE PER WEEK, OTHERWISE 125???G/D
     Route: 064
     Dates: start: 20161205, end: 20170822

REACTIONS (6)
  - Foetal exposure during pregnancy [Unknown]
  - Respiratory disorder neonatal [Recovered/Resolved]
  - Ventricular septal defect [Unknown]
  - Atrial septal defect [Unknown]
  - Coarctation of the aorta [Unknown]
  - Agitation neonatal [Recovered/Resolved]

NARRATIVE: CASE EVENT DATE: 20170822
